FAERS Safety Report 6813941-2 (Version None)
Quarter: 2010Q3

REPORT INFORMATION
  Report Type: 
  Country: None (occurrence: None)
  Receive Date: 20100702
  Receipt Date: 20090717
  Transmission Date: 20110219
  Serious: Yes (Other)
  Sender: FDA-Public Use
  Company Number: US-ASTRAZENECA-2007UW19269

PATIENT
  Age: 20567 Day
  Sex: Male
  Weight: 104.3 kg

DRUGS (32)
  1. SEROQUEL [Suspect]
     Indication: SLEEP DISORDER
     Dosage: 200 MG
     Route: 048
     Dates: start: 20041201
  2. SEROQUEL [Suspect]
     Indication: ANXIETY
     Dosage: 200 MG
     Route: 048
     Dates: start: 20041201
  3. SEROQUEL [Suspect]
     Indication: HALLUCINATION
     Dosage: 200 MG
     Route: 048
     Dates: start: 20041201
  4. SEROQUEL [Suspect]
     Indication: NIGHTMARE
     Dosage: 200 MG
     Route: 048
     Dates: start: 20041201
  5. SEROQUEL [Suspect]
     Indication: THINKING ABNORMAL
     Dosage: 200 MG
     Route: 048
     Dates: start: 20041201
  6. SEROQUEL [Suspect]
     Indication: INSOMNIA
     Dosage: 200 MG
     Route: 048
     Dates: start: 20041201
  7. SEROQUEL [Suspect]
     Dosage: 50 MG AT NIGHT, AS REQUIRED
     Route: 048
     Dates: start: 20050616, end: 20060329
  8. SEROQUEL [Suspect]
     Dosage: 50 MG AT NIGHT, AS REQUIRED
     Route: 048
     Dates: start: 20050616, end: 20060329
  9. SEROQUEL [Suspect]
     Dosage: 50 MG AT NIGHT, AS REQUIRED
     Route: 048
     Dates: start: 20050616, end: 20060329
  10. SEROQUEL [Suspect]
     Dosage: 50 MG AT NIGHT, AS REQUIRED
     Route: 048
     Dates: start: 20050616, end: 20060329
  11. SEROQUEL [Suspect]
     Dosage: 50 MG AT NIGHT, AS REQUIRED
     Route: 048
     Dates: start: 20050616, end: 20060329
  12. SEROQUEL [Suspect]
     Dosage: 50 MG AT NIGHT, AS REQUIRED
     Route: 048
     Dates: start: 20050616, end: 20060329
  13. SEROQUEL [Suspect]
     Dosage: 100MG TAKE ONE-HALF TABLET BY MOUTH AT BEDTIME
     Route: 048
     Dates: start: 20050616
  14. SEROQUEL [Suspect]
     Dosage: 100MG TAKE ONE-HALF TABLET BY MOUTH AT BEDTIME
     Route: 048
     Dates: start: 20050616
  15. SEROQUEL [Suspect]
     Dosage: 100MG TAKE ONE-HALF TABLET BY MOUTH AT BEDTIME
     Route: 048
     Dates: start: 20050616
  16. SEROQUEL [Suspect]
     Dosage: 100MG TAKE ONE-HALF TABLET BY MOUTH AT BEDTIME
     Route: 048
     Dates: start: 20050616
  17. SEROQUEL [Suspect]
     Dosage: 100MG TAKE ONE-HALF TABLET BY MOUTH AT BEDTIME
     Route: 048
     Dates: start: 20050616
  18. SEROQUEL [Suspect]
     Dosage: 100MG TAKE ONE-HALF TABLET BY MOUTH AT BEDTIME
     Route: 048
     Dates: start: 20050616
  19. VENLAFAXINE HCL [Concomitant]
     Dosage: 37.5-75MG TAKE ONE CAPSME BY MOUTH EVERY MORNING FOR 7 DAYS, THEN TAKE TWO ,
     Route: 048
     Dates: start: 20040918
  20. TRAZODONE HCL [Concomitant]
     Indication: SLEEP DISORDER
     Dosage: 50MG-100MG
     Route: 048
     Dates: start: 20040908
  21. TRAZODONE HCL [Concomitant]
     Indication: ANXIETY
     Dosage: 50MG-100MG
     Route: 048
     Dates: start: 20040908
  22. TRAZODONE HCL [Concomitant]
     Indication: DEPRESSION
     Dosage: 50MG-100MG
     Route: 048
     Dates: start: 20040908
  23. SERTRALINE [Concomitant]
     Dosage: 25-200MG
     Route: 048
  24. CLONAZEPAM [Concomitant]
     Indication: ANXIETY
     Dosage: 0.5MG-1MG
     Route: 048
  25. BUPROPION HCL [Concomitant]
     Indication: DEPRESSION
     Route: 048
     Dates: start: 20050616
  26. BUPROPION HCL [Concomitant]
     Indication: TOBACCO USER
     Route: 048
     Dates: start: 20050616
  27. REMERON [Concomitant]
     Indication: SLEEP DISORDER
     Route: 048
  28. REMERON [Concomitant]
     Indication: ANXIETY
     Route: 048
  29. SIMVASTATIN [Concomitant]
     Indication: BLOOD CHOLESTEROL
     Dosage: 10MG-20MG
     Route: 048
  30. CITALOPRAM HYDROBROMIDE [Concomitant]
     Indication: ANXIETY
     Dosage: 10MG-20MG
     Route: 048
     Dates: start: 20070227
  31. CITALOPRAM HYDROBROMIDE [Concomitant]
     Indication: DEPRESSION
     Dosage: 10MG-20MG
     Route: 048
     Dates: start: 20070227
  32. LANSOPRAZOLE [Concomitant]
     Route: 048

REACTIONS (6)
  - ATAXIA [None]
  - BREATHING-RELATED SLEEP DISORDER [None]
  - BURNING SENSATION [None]
  - NEUROPATHY PERIPHERAL [None]
  - PRESBYOPIA [None]
  - TYPE 2 DIABETES MELLITUS [None]
